FAERS Safety Report 22185117 (Version 1)
Quarter: 2023Q2

REPORT INFORMATION
  Report Type: Spontaneous
  Country: HR (occurrence: HR)
  Receive Date: 20230407
  Receipt Date: 20230407
  Transmission Date: 20230721
  Serious: Yes (Death, Hospitalization, Other)
  Sender: FDA-Public Use
  Company Number: HR-BAYER-2021A247116

PATIENT
  Age: 69 Year
  Sex: Male

DRUGS (9)
  1. XARELTO [Suspect]
     Active Substance: RIVAROXABAN
     Indication: Atrial fibrillation
     Route: 048
  2. RAMIPRIL [Concomitant]
     Active Substance: RAMIPRIL
     Indication: Hypertension
     Dosage: 5 MG, OM
  3. HYDROCHLOROTHIAZIDE [Concomitant]
     Active Substance: HYDROCHLOROTHIAZIDE
     Indication: Hypertension
     Dosage: 25 MG, OM
  4. PROPAFENONE [Concomitant]
     Active Substance: PROPAFENONE
     Indication: Atrial fibrillation
     Dosage: 150 MG, PRN
  5. SUNITINIB [Concomitant]
     Active Substance: SUNITINIB
     Indication: Metastases to lung
     Dosage: UNK
     Dates: start: 2016
  6. BISOPROLOL [Concomitant]
     Active Substance: BISOPROLOL
     Dosage: 2.5 MG, QD
  7. FUROSEMIDE [Concomitant]
     Active Substance: FUROSEMIDE
     Dosage: 40 MG, OM
  8. EPLERENONE [Concomitant]
     Active Substance: EPLERENONE
     Dosage: 12.5 MG, OM
  9. NIVOLUMAB [Concomitant]
     Active Substance: NIVOLUMAB
     Route: 042

REACTIONS (4)
  - Respiratory failure [Fatal]
  - Metastases to lung [Fatal]
  - Cardiac failure [Unknown]
  - Arrhythmia [Unknown]
